FAERS Safety Report 14380553 (Version 5)
Quarter: 2018Q3

REPORT INFORMATION
  Report Type: Spontaneous
  Country: JP (occurrence: JP)
  Receive Date: 20180112
  Receipt Date: 20180907
  Transmission Date: 20181010
  Serious: Yes (Other)
  Sender: FDA-Public Use
  Company Number: JP-PFIZER INC-2018011589

PATIENT
  Age: 45 Year
  Sex: Female

DRUGS (4)
  1. IBRANCE [Suspect]
     Active Substance: PALBOCICLIB
     Dosage: 75 MG, UNK
     Route: 048
     Dates: start: 20180117
  2. IBRANCE [Suspect]
     Active Substance: PALBOCICLIB
     Dosage: 125 MG, UNK
     Route: 048
     Dates: start: 20171226, end: 20180109
  3. IBRANCE [Suspect]
     Active Substance: PALBOCICLIB
     Dosage: 50 MG, UNK
     Route: 048
     Dates: start: 20180131, end: 20180306
  4. FASLODEX [Concomitant]
     Active Substance: FULVESTRANT
     Dosage: UNK
     Dates: start: 20171226

REACTIONS (4)
  - Malignant pleural effusion [Recovered/Resolved]
  - Renal impairment [Recovered/Resolved]
  - Bone marrow failure [Recovering/Resolving]
  - Hepatic function abnormal [Unknown]

NARRATIVE: CASE EVENT DATE: 20180109
